FAERS Safety Report 8257387-1 (Version None)
Quarter: 2012Q2

REPORT INFORMATION
  Report Type: 
  Country: None (occurrence: None)
  Receive Date: 20120403
  Receipt Date: 20120328
  Transmission Date: 20120825
  Serious: Yes (Other)
  Sender: FDA-Public Use
  Company Number: NL-PFIZER INC-2012063029

PATIENT
  Age: 36 Year
  Sex: Female
  Weight: 68 kg

DRUGS (3)
  1. DEPO-PROVERA [Suspect]
     Indication: CONTRACEPTION
     Dosage: UNK
  2. NAPROXEN [Concomitant]
     Dosage: UNK
  3. INTRAUTERINE CONTRACEPTIVES [Concomitant]
     Indication: CONTRACEPTION

REACTIONS (13)
  - FEELING ABNORMAL [None]
  - ENDOMETRIAL DISORDER [None]
  - BREAST PAIN [None]
  - ALOPECIA [None]
  - LIBIDO DECREASED [None]
  - PERSONALITY CHANGE [None]
  - CRYING [None]
  - WEIGHT INCREASED [None]
  - FATIGUE [None]
  - SUICIDAL IDEATION [None]
  - MENORRHAGIA [None]
  - DEPRESSION [None]
  - SEXUALLY TRANSMITTED DISEASE [None]
